FAERS Safety Report 4764313-6 (Version None)
Quarter: 2005Q3

REPORT INFORMATION
  Report Type: 
  Country: None (occurrence: None)
  Receive Date: 20050907
  Receipt Date: 20050907
  Transmission Date: 20060218
  Serious: Yes (Life-Threatening, Hospitalization, Disabling)
  Sender: FDA-Public Use
  Company Number: None

PATIENT
  Sex: Male

DRUGS (5)
  1. VIOXX [Suspect]
     Indication: ARTHRITIS
     Dosage: 25 MG ONCE DAILY
     Dates: start: 20000401, end: 20041101
  2. LOPRESSOR [Concomitant]
  3. VASOTEC RPD [Concomitant]
  4. LIPITOR [Concomitant]
  5. DYAZIDE [Concomitant]

REACTIONS (9)
  - ABASIA [None]
  - BALANCE DISORDER [None]
  - DIZZINESS [None]
  - HEADACHE [None]
  - HEART RATE IRREGULAR [None]
  - RENAL IMPAIRMENT [None]
  - RESPIRATORY RATE INCREASED [None]
  - TRANSIENT ISCHAEMIC ATTACK [None]
  - VITREOUS FLOATERS [None]
